FAERS Safety Report 16225555 (Version 1)
Quarter: 2019Q2

REPORT INFORMATION
  Report Type: Spontaneous
  Country: US (occurrence: US)
  Receive Date: 20190422
  Receipt Date: 20190422
  Transmission Date: 20190711
  Serious: No
  Sender: FDA-Public Use
  Company Number: US-009507513-1904USA004167

PATIENT
  Age: 8 Year
  Sex: Female

DRUGS (4)
  1. STROMECTOL [Suspect]
     Active Substance: IVERMECTIN
     Indication: HELMINTHIC INFECTION
  2. STROMECTOL [Suspect]
     Active Substance: IVERMECTIN
     Indication: ACARODERMATITIS
  3. STROMECTOL [Suspect]
     Active Substance: IVERMECTIN
     Indication: LICE INFESTATION
  4. STROMECTOL [Suspect]
     Active Substance: IVERMECTIN
     Indication: BED BUG INFESTATION
     Dosage: UNK
     Route: 048
     Dates: start: 20190325

REACTIONS (3)
  - Drug ineffective for unapproved indication [Not Recovered/Not Resolved]
  - Drug ineffective [Not Recovered/Not Resolved]
  - Product use in unapproved indication [Unknown]

NARRATIVE: CASE EVENT DATE: 2019
